FAERS Safety Report 24670012 (Version 1)
Quarter: 2024Q4

REPORT INFORMATION
  Report Type: Spontaneous
  Country: BR (occurrence: BR)
  Receive Date: 20241127
  Receipt Date: 20241127
  Transmission Date: 20250115
  Serious: Yes (Hospitalization, Other)
  Sender: ASTELLAS
  Company Number: BR-ASTELLAS-2024-AER-019719

PATIENT
  Age: 83 Year
  Sex: Male

DRUGS (1)
  1. XTANDI [Suspect]
     Active Substance: ENZALUTAMIDE
     Indication: Product used for unknown indication
     Route: 048
     Dates: end: 20241101

REACTIONS (4)
  - Aspiration [Not Recovered/Not Resolved]
  - Asthma [Unknown]
  - Cerebrovascular accident [Unknown]
  - Dysphagia [Not Recovered/Not Resolved]

NARRATIVE: CASE EVENT DATE: 20240501
